FAERS Safety Report 4937144-1 (Version None)
Quarter: 2006Q1

REPORT INFORMATION
  Report Type: 
  Country: None (occurrence: None)
  Receive Date: 20060302
  Receipt Date: 20060224
  Transmission Date: 20060701
  Serious: Yes (Hospitalization)
  Sender: FDA-Public Use
  Company Number: 2006027212

PATIENT
  Age: 71 Year
  Sex: Female
  Weight: 71 kg

DRUGS (12)
  1. XANAX [Suspect]
     Indication: ILL-DEFINED DISORDER
     Dosage: 1.5 MG, ORAL
     Route: 048
  2. TRAMADOL HCL [Suspect]
     Indication: ILL-DEFINED DISORDER
     Dosage: 300 MG (150 MG, 2 IN 1 D), ORAL
     Route: 048
     Dates: end: 20051227
  3. HALOPERIDOL [Suspect]
     Indication: ILL-DEFINED DISORDER
     Dosage: 1.12 MG, ORAL
     Route: 048
  4. ZOPICLONE (ZOPICLONE) [Suspect]
     Indication: ILL-DEFINED DISORDER
     Dosage: 7.5 MG, ORAL
     Route: 048
  5. VALSARTAN [Suspect]
     Indication: ILL-DEFINED DISORDER
     Dosage: 80 MG, ORAL
     Route: 048
  6. PROTHIADEN [Suspect]
     Indication: ILL-DEFINED DISORDER
     Dosage: 50 MG (25 MG, 2 IN 1 D), ORAL
  7. INIPOMP (PANTOPRAZOLE) [Concomitant]
  8. CALPEROS D3 (CALCIUM CARBONATE, COLECALCIFEROL) [Concomitant]
  9. SPAGULAX (ISPAGHULA) [Concomitant]
  10. VOLTAREN [Concomitant]
  11. ACETAMINOPHEN [Concomitant]
  12. TRIMEBUTINE (TRIMEBUTINE ) [Concomitant]

REACTIONS (7)
  - ABDOMINAL PAIN LOWER [None]
  - AGGRESSION [None]
  - AGITATION [None]
  - BALANCE DISORDER [None]
  - DELIRIUM [None]
  - INCOHERENT [None]
  - INSOMNIA [None]
